FAERS Safety Report 4962772-7 (Version None)
Quarter: 2006Q2

REPORT INFORMATION
  Report Type: 
  Country: None (occurrence: None)
  Receive Date: 20060404
  Receipt Date: 20050302
  Transmission Date: 20061013
  Serious: Yes (Hospitalization, Other)
  Sender: FDA-Public Use
  Company Number: US-MERCK-0503USA00613

PATIENT
  Sex: Male
  Weight: 64 kg

DRUGS (1)
  1. VIOXX [Suspect]
     Indication: RHEUMATOID ARTHRITIS
     Route: 048
     Dates: start: 20010525, end: 20020401

REACTIONS (4)
  - CEREBROVASCULAR ACCIDENT [None]
  - HOSPITALISATION [None]
  - MYOCARDIAL INFARCTION [None]
  - THROMBOSIS [None]
